FAERS Safety Report 24113814 (Version 1)
Quarter: 2024Q3

REPORT INFORMATION
  Report Type: Spontaneous
  Country: GB (occurrence: GB)
  Receive Date: 20240720
  Receipt Date: 20240720
  Transmission Date: 20241016
  Serious: Yes (Death, Hospitalization, Other)
  Sender: CELLTRION
  Company Number: GB-CELLTRION INC.-2024GB017258

PATIENT

DRUGS (7)
  1. TRASTUZUMAB [Suspect]
     Active Substance: TRASTUZUMAB
     Indication: Ovarian cancer
     Dosage: 800 MG, EVERY 1 DAY
     Route: 042
     Dates: start: 20240223, end: 20240223
  2. TRASTUZUMAB [Suspect]
     Active Substance: TRASTUZUMAB
     Dosage: 800 MG, EVERY 1 DAY
     Route: 042
     Dates: start: 20240223, end: 20240223
  3. TRASTUZUMAB [Suspect]
     Active Substance: TRASTUZUMAB
     Dosage: 600 MG, EVERY 3 WEEKS
     Route: 042
     Dates: start: 20240315, end: 20240315
  4. TRASTUZUMAB [Suspect]
     Active Substance: TRASTUZUMAB
     Dosage: RECEIVED THE MOST RECENT ADMINISTRATIONS OF PERTUZUMAB AND TRASTUZUMAB
     Dates: start: 20240405
  5. PERTUZUMAB [Suspect]
     Active Substance: PERTUZUMAB
     Indication: Ovarian cancer
     Dosage: 840 MG, EVERY 1 DAY
     Route: 042
     Dates: start: 20240223, end: 20240223
  6. PERTUZUMAB [Suspect]
     Active Substance: PERTUZUMAB
     Dosage: 420 MG, EVERY 3 WEEKS
     Route: 042
     Dates: start: 20240315, end: 20240315
  7. PERTUZUMAB [Suspect]
     Active Substance: PERTUZUMAB
     Dosage: RECEIVED THE MOST RECENT ADMINISTRATIONS OF PERTUZUMAB AND TRASTUZUMAB
     Dates: start: 20240405

REACTIONS (7)
  - Disease progression [Fatal]
  - Biliary obstruction [Not Recovered/Not Resolved]
  - Cholestasis [Not Recovered/Not Resolved]
  - Drug-induced liver injury [Not Recovered/Not Resolved]
  - Blood bilirubin increased [Not Recovered/Not Resolved]
  - COVID-19 [Unknown]
  - Intentional product use issue [Unknown]

NARRATIVE: CASE EVENT DATE: 20240405
